FAERS Safety Report 8002030-X (Version None)
Quarter: 2011Q4

REPORT INFORMATION
  Report Type: 
  Country: None (occurrence: None)
  Receive Date: 20111220
  Receipt Date: 20111205
  Transmission Date: 20120403
  Serious: Yes (Death)
  Sender: FDA-Public Use
  Company Number: UTC-013103

PATIENT
  Age: 55 Year
  Sex: Male
  Weight: 65.91 kg

DRUGS (2)
  1. COUMADIN [Concomitant]
  2. REMODULIN [Suspect]
     Indication: COR PULMONALE CHRONIC
     Dosage: (0.098 UG/KG), SUBCUTANEOUS
     Route: 058
     Dates: start: 20090112

REACTIONS (1)
  - DEATH [None]
